FAERS Safety Report 20736112 (Version 2)
Quarter: 2022Q2

REPORT INFORMATION
  Report Type: Spontaneous
  Country: PT (occurrence: PT)
  Receive Date: 20220421
  Receipt Date: 20220425
  Transmission Date: 20220720
  Serious: Yes (Disabling)
  Sender: FDA-Public Use
  Company Number: None

PATIENT
  Age: 26 Year
  Sex: Female
  Weight: 75 kg

DRUGS (2)
  1. RISPERDAL [Suspect]
     Active Substance: RISPERIDONE
     Indication: Mental disorder
     Route: 048
     Dates: start: 20010301
  2. BUDESONIDE [Concomitant]
     Active Substance: BUDESONIDE
     Route: 055

REACTIONS (6)
  - Seizure [Unknown]
  - Tooth demineralisation [Unknown]
  - Diplopia [Unknown]
  - Cyst [Unknown]
  - Bartholin^s cyst [Unknown]
  - Galactorrhoea [Unknown]

NARRATIVE: CASE EVENT DATE: 20010301
